FAERS Safety Report 6722131-3 (Version None)
Quarter: 2010Q2

REPORT INFORMATION
  Report Type: 
  Country: None (occurrence: None)
  Receive Date: 20100512
  Receipt Date: 20100428
  Transmission Date: 20101027
  Serious: Yes (Life-Threatening, Hospitalization)
  Sender: FDA-Public Use
  Company Number: CH-ELI_LILLY_AND_COMPANY-CH201005000370

PATIENT
  Age: 26 Year
  Sex: Female

DRUGS (6)
  1. FLUCTINE [Suspect]
     Dosage: 20 MG, DAILY (1/D)
     Route: 048
     Dates: start: 20100105, end: 20100119
  2. FLUCTINE [Suspect]
     Dosage: 40 MG, DAILY (1/D)
     Route: 048
     Dates: start: 20100120, end: 20100308
  3. TRAZODONE HCL [Concomitant]
     Dosage: 100 MG, DAILY (1/D)
     Route: 048
     Dates: start: 20100105, end: 20100322
  4. EFFEXOR XR [Concomitant]
     Indication: DEPRESSION
     Dosage: 75 MG, DAILY (1/D)
     Route: 048
     Dates: start: 20100309, end: 20100311
  5. EFFEXOR XR [Concomitant]
     Dosage: 150 MG, DAILY (1/D)
     Route: 048
     Dates: start: 20100312, end: 20100315
  6. EFFEXOR XR [Concomitant]
     Dosage: 225 MG, DAILY (1/D)
     Route: 048
     Dates: start: 20100316, end: 20100322

REACTIONS (4)
  - DEPRESSED MOOD [None]
  - DEPRESSION SUICIDAL [None]
  - DRUG INTERACTION [None]
  - HOSPITALISATION [None]
